FAERS Safety Report 10149228 (Version 1)
Quarter: 2014Q2

REPORT INFORMATION
  Report Type: Spontaneous
  Country: US (occurrence: None)
  Receive Date: 20140501
  Receipt Date: 20140501
  Transmission Date: 20141212
  Serious: Yes (Other)
  Sender: FDA-Public Use
  Company Number: None

PATIENT
  Age: 25 Year
  Sex: Male
  Weight: 76.2 kg

DRUGS (1)
  1. INTELENCE [Suspect]
     Indication: PRODUCT USED FOR UNKNOWN INDICATION
     Dosage: INTELENCE ORAL 047 BID 042
     Route: 048
     Dates: start: 20140317, end: 20140415

REACTIONS (6)
  - Nausea [None]
  - Vomiting [None]
  - Treatment noncompliance [None]
  - Epistaxis [None]
  - Dehydration [None]
  - Sinus disorder [None]
